FAERS Safety Report 8770591 (Version 1)
Quarter: 2012Q4

REPORT INFORMATION
  Report Type: 
  Country: US (occurrence: US)
  Receive Date: 20120906
  Receipt Date: 20120906
  Transmission Date: 20130627
  Serious: Yes (Hospitalization)
  Sender: FDA-Public Use
  Company Number: US-BAYER-2012-091259

PATIENT
  Age: 46 Year
  Sex: Female

DRUGS (9)
  1. YASMIN [Suspect]
  2. TOPAMAX [Concomitant]
     Dosage: 150 mg, HS
     Dates: start: 20070226
  3. KEPPRA [Concomitant]
     Dosage: 250 mg, QID
     Route: 048
     Dates: start: 20070226
  4. PENTOXIFYLLINE [Concomitant]
     Dosage: 400 mg, BID
     Dates: start: 20070226
  5. NAMENDA [Concomitant]
     Dosage: 10 mg, BID
     Dates: start: 20070226
  6. PROVIGIL [Concomitant]
     Dosage: 200 mg, OM
     Dates: start: 20070226
  7. PROVIGIL [Concomitant]
     Dosage: 100 mg, at noon
     Dates: start: 20070226
  8. ARICEPT [Concomitant]
     Dosage: 10 mg, HS
     Dates: start: 20070226
  9. SERTRALINE [Concomitant]
     Dosage: 50 mg, HS
     Route: 048
     Dates: start: 20070226

REACTIONS (2)
  - Deep vein thrombosis [None]
  - Thrombophlebitis superficial [None]
